FAERS Safety Report 9272586 (Version 2)
Quarter: 2013Q2

REPORT INFORMATION
  Report Type: Spontaneous
  Country: US (occurrence: US)
  Receive Date: 20130506
  Receipt Date: 20130605
  Transmission Date: 20140414
  Serious: Yes (Other)
  Sender: FDA-Public Use
  Company Number: US-ASTRAZENECA-2013SE27886

PATIENT
  Age: 67 Year
  Sex: Female
  Weight: 45.4 kg

DRUGS (4)
  1. SYMBICORT [Suspect]
     Indication: ASTHMA
     Dosage: 160/4.5, 2 PUFFS,  BID
     Route: 055
     Dates: start: 2011
  2. HYDROMED [Concomitant]
     Indication: COUGH
     Dosage: PRN
     Route: 048
     Dates: start: 2001
  3. HYDROCODONE [Concomitant]
     Indication: COUGH
     Dosage: PRN
     Route: 048
     Dates: start: 2001
  4. HYDROCODONE [Concomitant]
     Indication: PAIN
     Dosage: PRN
     Route: 048
     Dates: start: 2001

REACTIONS (6)
  - Asphyxia [Recovered/Resolved]
  - Chest discomfort [Recovered/Resolved]
  - Asthma [Recovered/Resolved]
  - Weight gain poor [Not Recovered/Not Resolved]
  - Intentional drug misuse [Recovered/Resolved]
  - Drug dose omission [Not Recovered/Not Resolved]
